FAERS Safety Report 8164374-0 (Version None)
Quarter: 2012Q1

REPORT INFORMATION
  Report Type: 
  Country: None (occurrence: None)
  Receive Date: 20120224
  Receipt Date: 20120220
  Transmission Date: 20120608
  Serious: Yes (Life-Threatening, Other)
  Sender: FDA-Public Use
  Company Number: GXKR2007GB01502

PATIENT
  Age: 68 Year
  Weight: 70 kg

DRUGS (2)
  1. AMIODARONE HCL [Suspect]
     Indication: VENTRICULAR TACHYCARDIA
     Dosage: 100 MG, UNK
     Route: 048
     Dates: start: 20060717, end: 20061124
  2. AMIODARONE HCL [Suspect]
     Route: 042

REACTIONS (4)
  - ANXIETY [None]
  - HYPOTHYROIDISM [None]
  - TYPE 2 DIABETES MELLITUS [None]
  - DEPRESSION SUICIDAL [None]
